FAERS Safety Report 13591021 (Version 1)
Quarter: 2017Q2

REPORT INFORMATION
  Report Type: Spontaneous
  Country: US (occurrence: US)
  Receive Date: 20170529
  Receipt Date: 20170529
  Transmission Date: 20170830
  Serious: No
  Sender: FDA-Public Use
  Company Number: None

PATIENT
  Age: 60 Year
  Sex: Male

DRUGS (1)
  1. VOTRIENT [Suspect]
     Active Substance: PAZOPANIB HYDROCHLORIDE

REACTIONS (6)
  - Lower limb fracture [None]
  - Decreased appetite [None]
  - Weight decreased [None]
  - Unresponsive to stimuli [None]
  - Metastases to bone [None]
  - Nausea [None]

NARRATIVE: CASE EVENT DATE: 20170529
